FAERS Safety Report 7571758-8 (Version None)
Quarter: 2011Q2

REPORT INFORMATION
  Report Type: 
  Country: None (occurrence: None)
  Receive Date: 20110624
  Receipt Date: 20110615
  Transmission Date: 20111010
  Serious: Yes (Hospitalization)
  Sender: FDA-Public Use
  Company Number: CH-ASTRAZENECA-2011SE36772

PATIENT
  Age: 36 Year
  Sex: Female

DRUGS (22)
  1. MOTILIUM [Concomitant]
     Indication: NAUSEA
     Route: 060
     Dates: start: 20110412, end: 20110421
  2. NEXIUM [Concomitant]
     Indication: NAUSEA
     Route: 048
     Dates: start: 20110308
  3. SCOPOLAMINE [Concomitant]
     Route: 048
     Dates: start: 20110308, end: 20110426
  4. DEXAMETHASONE [Concomitant]
     Route: 048
     Dates: start: 20110301, end: 20110301
  5. FLAGYL [Concomitant]
     Indication: PYREXIA
     Dates: start: 20110410, end: 20110503
  6. AMSIDYL [Suspect]
     Indication: MYELODYSPLASTIC SYNDROME
     Route: 041
     Dates: start: 20110329
  7. CANCIDAS [Suspect]
     Indication: PYREXIA
     Route: 048
     Dates: start: 20110407, end: 20110412
  8. MOTILIUM [Concomitant]
     Indication: VOMITING
     Route: 060
     Dates: start: 20110412, end: 20110421
  9. PIPERACILLIN AND TAZOBACTAM [Concomitant]
     Indication: PYREXIA
     Dates: start: 20110415, end: 20110426
  10. ZOLPIDEM [Concomitant]
     Indication: SLEEP DISORDER
     Route: 048
     Dates: start: 20110308, end: 20110426
  11. ESCITALOPRAM [Suspect]
     Indication: DEPRESSION
     Route: 048
     Dates: start: 20110308, end: 20110421
  12. PASPERTIN [Concomitant]
     Indication: VOMITING
     Route: 048
     Dates: start: 20110308, end: 20110411
  13. PRIMOLUT N [Concomitant]
     Dosage: ONE PER FOUR DAYS
     Route: 048
  14. PASPERTIN [Concomitant]
     Indication: NAUSEA
     Route: 048
     Dates: start: 20110308, end: 20110411
  15. ESCITALOPRAM [Suspect]
     Indication: BIPOLAR DISORDER
     Route: 048
     Dates: start: 20110308, end: 20110421
  16. IDARUBICIN HYDROCHLORIDE [Suspect]
     Indication: MYELODYSPLASTIC SYNDROME
     Route: 041
     Dates: start: 20110310, end: 20110312
  17. NEXIUM [Concomitant]
     Indication: VOMITING
     Route: 048
     Dates: start: 20110308
  18. MEROPENEM [Suspect]
     Indication: PYREXIA
     Route: 041
     Dates: start: 20110407
  19. CYTOSAR-U [Suspect]
     Indication: MYELODYSPLASTIC SYNDROME
     Route: 041
     Dates: start: 20110329, end: 20110403
  20. FAMVIR [Suspect]
     Indication: PYREXIA
     Route: 048
     Dates: start: 20110405, end: 20110412
  21. ACETAMINOPHEN [Concomitant]
     Indication: PAIN
     Route: 040
     Dates: start: 20110308, end: 20110406
  22. VFEND [Concomitant]
     Indication: PYREXIA
     Dosage: ONE PER TWO DAYS
     Route: 048
     Dates: start: 20110413, end: 20110421

REACTIONS (7)
  - COAGULOPATHY [None]
  - RHABDOMYOLYSIS [None]
  - RASH [None]
  - CYTARABINE SYNDROME [None]
  - SEROTONIN SYNDROME [None]
  - MYALGIA [None]
  - HEPATOCELLULAR INJURY [None]
